FAERS Safety Report 23885365 (Version 1)
Quarter: 2024Q2

REPORT INFORMATION
  Report Type: Spontaneous
  Country: IT (occurrence: IT)
  Receive Date: 20240522
  Receipt Date: 20240522
  Transmission Date: 20240716
  Serious: Yes (Hospitalization)
  Sender: FDA-Public Use
  Company Number: None

PATIENT
  Age: 82 Year
  Sex: Female

DRUGS (6)
  1. TYGACIL [Suspect]
     Active Substance: TIGECYCLINE
     Indication: Sepsis
     Dosage: FREQ:12 H;100 MG EVERY 12 HOURS
     Route: 042
     Dates: start: 202404, end: 20240423
  2. PIPERACILLIN SODIUM\TAZOBACTAM SODIUM [Suspect]
     Active Substance: PIPERACILLIN SODIUM\TAZOBACTAM SODIUM
     Indication: Sepsis
     Dosage: FREQ:8 H;4,5 GRAM EVERY 8 HOURS
     Route: 042
     Dates: start: 202404, end: 20240418
  3. POTASSIUM CHLORIDE [Suspect]
     Active Substance: POTASSIUM CHLORIDE
     Indication: Hypokalaemia
     Dosage: 30 MEQ IN 500 CC OF HYPOTONIC SOLUTION
     Route: 042
     Dates: start: 20240414
  4. MEMANTINE [Concomitant]
     Active Substance: MEMANTINE
     Indication: Dementia
     Dosage: 20 MG
     Route: 048
  5. RIVASTIGMINE [Concomitant]
     Active Substance: RIVASTIGMINE
     Indication: Dementia
     Dosage: 13.3 MG
     Route: 003
  6. QUETIAPINE [Concomitant]
     Active Substance: QUETIAPINE
     Dosage: 25 MG
     Route: 048

REACTIONS (1)
  - Acute generalised exanthematous pustulosis [Recovering/Resolving]

NARRATIVE: CASE EVENT DATE: 20240422
